FAERS Safety Report 9127542 (Version 1)
Quarter: 2013Q1

REPORT INFORMATION
  Report Type: Spontaneous
  Country: US (occurrence: US)
  Receive Date: 20130228
  Receipt Date: 20130228
  Transmission Date: 20140127
  Serious: No
  Sender: FDA-Public Use
  Company Number: US-GLAXOSMITHKLINE-A0982932A

PATIENT
  Sex: Male
  Weight: 93.2 kg

DRUGS (1)
  1. LAMOTRIGINE [Suspect]
     Indication: MAJOR DEPRESSION
     Dosage: 400MG IN THE MORNING
     Route: 065

REACTIONS (1)
  - Dizziness postural [Not Recovered/Not Resolved]
